FAERS Safety Report 25152584 (Version 2)
Quarter: 2025Q2

REPORT INFORMATION
  Report Type: Spontaneous
  Country: JP (occurrence: JP)
  Receive Date: 20250402
  Receipt Date: 20250623
  Transmission Date: 20250716
  Serious: Yes (Hospitalization, Other)
  Sender: BRISTOL-MYERS SQUIBB COMPANY
  Company Number: JP-BRISTOL-MYERS SQUIBB COMPANY-2025-045723

PATIENT
  Age: 73 Year
  Sex: Male
  Weight: 46 kg

DRUGS (14)
  1. YERVOY [Suspect]
     Active Substance: IPILIMUMAB
     Indication: Oesophageal carcinoma
     Route: 041
     Dates: start: 20240214, end: 20241007
  2. OPDIVO [Suspect]
     Active Substance: NIVOLUMAB
     Indication: Oesophageal carcinoma
     Route: 041
     Dates: start: 20240214, end: 20241007
  3. POTASSIUM ASPARTATE [Concomitant]
     Active Substance: POTASSIUM ASPARTATE
     Indication: Product used for unknown indication
  4. SULFAMETHOXAZOLE\TRIMETHOPRIM [Concomitant]
     Active Substance: SULFAMETHOXAZOLE\TRIMETHOPRIM
     Indication: Product used for unknown indication
  5. LANSOPRAZOLE [Concomitant]
     Active Substance: LANSOPRAZOLE
     Indication: Product used for unknown indication
  6. MIYA-BM [Concomitant]
     Active Substance: CLOSTRIDIUM BUTYRICUM SPORES STRAIN M-55
     Indication: Product used for unknown indication
  7. HERBALS [Concomitant]
     Active Substance: HERBALS
     Indication: Product used for unknown indication
  8. PREDNISOLONE [Concomitant]
     Active Substance: PREDNISOLONE
     Indication: Product used for unknown indication
  9. PREDNISOLONE [Concomitant]
     Active Substance: PREDNISOLONE
  10. PREDNISOLONE [Concomitant]
     Active Substance: PREDNISOLONE
  11. PREDNISOLONE [Concomitant]
     Active Substance: PREDNISOLONE
     Dates: start: 20250217
  12. PREDNISOLONE [Concomitant]
     Active Substance: PREDNISOLONE
  13. PREDNISOLONE [Concomitant]
     Active Substance: PREDNISOLONE
     Dates: end: 20250221
  14. PREDNISOLONE [Concomitant]
     Active Substance: PREDNISOLONE
     Dates: start: 20250222

REACTIONS (4)
  - Immune-mediated enterocolitis [Recovering/Resolving]
  - Immune-mediated myositis [Unknown]
  - Tubulointerstitial nephritis [Unknown]
  - Hypokalaemia [Unknown]

NARRATIVE: CASE EVENT DATE: 20250217
